FAERS Safety Report 9648124 (Version 1)
Quarter: 2013Q4

REPORT INFORMATION
  Report Type: Spontaneous
  Country: FR (occurrence: FR)
  Receive Date: 20131028
  Receipt Date: 20131028
  Transmission Date: 20140711
  Serious: Yes (Other)
  Sender: FDA-Public Use
  Company Number: PHHY2013FR120928

PATIENT
  Age: 70 Year
  Sex: Male

DRUGS (5)
  1. GLIVEC [Suspect]
     Indication: CHRONIC MYELOID LEUKAEMIA
     Dosage: 400 MG, QD
     Route: 048
     Dates: start: 2006
  2. PAROXETINE [Concomitant]
     Dosage: UNK UKN, UNK
  3. MECIR [Concomitant]
     Dosage: UNK UKN, UNK
  4. ATARAX                                  /CAN/ [Concomitant]
     Dosage: UNK UKN, UNK
  5. LYSANXIA [Concomitant]
     Dosage: UNK UKN, UNK

REACTIONS (1)
  - Retinitis pigmentosa [Not Recovered/Not Resolved]
